FAERS Safety Report 9697299 (Version 1)
Quarter: 2013Q4

REPORT INFORMATION
  Report Type: Spontaneous
  Country: US (occurrence: US)
  Receive Date: 20131120
  Receipt Date: 20131120
  Transmission Date: 20140711
  Serious: Yes (Other)
  Sender: FDA-Public Use
  Company Number: US-TEVA-445256USA

PATIENT
  Age: 37 Year
  Sex: Female
  Weight: 58.57 kg

DRUGS (1)
  1. PARAGARD 380A [Suspect]
     Indication: CONTRACEPTION
     Dates: start: 20130215, end: 20131028

REACTIONS (3)
  - Pregnancy with contraceptive device [Not Recovered/Not Resolved]
  - Drug ineffective [Not Recovered/Not Resolved]
  - Menstruation delayed [Not Recovered/Not Resolved]
